FAERS Safety Report 13445698 (Version 1)
Quarter: 2017Q2

REPORT INFORMATION
  Report Type: Spontaneous
  Country: US (occurrence: US)
  Receive Date: 20170416
  Receipt Date: 20170416
  Transmission Date: 20170830
  Serious: No
  Sender: FDA-Public Use
  Company Number: US-ENDO PHARMACEUTICALS INC-2016-001926

PATIENT
  Sex: Male

DRUGS (1)
  1. AMPICILLIN CAPSULES [Suspect]
     Active Substance: AMPICILLIN
     Indication: BRONCHITIS
     Route: 065

REACTIONS (1)
  - Drug ineffective [Unknown]
